FAERS Safety Report 6531670-X (Version None)
Quarter: 2010Q1

REPORT INFORMATION
  Report Type: 
  Country: None (occurrence: None)
  Receive Date: 20100107
  Receipt Date: 20100107
  Transmission Date: 20100710
  Serious: Yes (Life-Threatening)
  Sender: FDA-Public Use
  Company Number: None

PATIENT
  Age: 58 Year
  Sex: Male

DRUGS (10)
  1. SYMLIN [Suspect]
     Route: 058
  2. ZOCOR [Suspect]
  3. GLARGINE INSULIN [Concomitant]
  4. ASPART INSULIN [Concomitant]
  5. ACTOS [Suspect]
  6. NIACIN [Concomitant]
  7. FOSINOPRIL SODIUM [Concomitant]
  8. METFORMIN [Concomitant]
  9. ASPIRIN [Concomitant]
  10. HCTZ AND TRIAMTERENE [Concomitant]

REACTIONS (1)
  - PANCREATITIS [None]
